FAERS Safety Report 6963634-6 (Version None)
Quarter: 2010Q3

REPORT INFORMATION
  Report Type: 
  Country: None (occurrence: None)
  Receive Date: 20100902
  Receipt Date: 20100827
  Transmission Date: 20110219
  Serious: Yes (Other)
  Sender: FDA-Public Use
  Company Number: TW-BAXTER-2010BH022423

PATIENT
  Age: 42 Year
  Sex: Female

DRUGS (5)
  1. CYCLOPHOSPHAMIDE [Suspect]
     Indication: T-CELL LYMPHOMA
     Route: 065
  2. BLEOMYCIN GENERIC [Suspect]
     Indication: T-CELL LYMPHOMA
     Route: 065
  3. DOXORUBICIN HCL [Suspect]
     Indication: T-CELL LYMPHOMA
     Route: 065
  4. VINCRISTINE SULFATE [Suspect]
     Indication: T-CELL LYMPHOMA
     Route: 065
  5. PREDNISONE [Suspect]
     Indication: T-CELL LYMPHOMA
     Route: 065

REACTIONS (2)
  - OVARIAN FAILURE [None]
  - PELVIC ABSCESS [None]
